FAERS Safety Report 13578400 (Version 4)
Quarter: 2019Q2

REPORT INFORMATION
  Report Type: Report from Study
  Country: US (occurrence: US)
  Receive Date: 20170524
  Receipt Date: 20190425
  Transmission Date: 20190711
  Serious: Yes (Death, Other)
  Sender: FDA-Public Use
  Company Number: US-REGENERON PHARMACEUTICALS, INC.-2017-16085

PATIENT

DRUGS (2)
  1. EYLEA [Suspect]
     Active Substance: AFLIBERCEPT
     Indication: NEOVASCULAR AGE-RELATED MACULAR DEGENERATION
     Dosage: UNK
     Dates: start: 20131211, end: 20151209
  2. EYLEA [Suspect]
     Active Substance: AFLIBERCEPT
     Dosage: Q4WEEK IF NEEDED, LEFT EYE (OS)
     Route: 031
     Dates: start: 20151028, end: 20151209

REACTIONS (1)
  - Death [Fatal]

NARRATIVE: CASE EVENT DATE: 201705
